FAERS Safety Report 7775935-2 (Version None)
Quarter: 2011Q3

REPORT INFORMATION
  Report Type: 
  Country: None (occurrence: None)
  Receive Date: 20110923
  Receipt Date: 20110914
  Transmission Date: 20111222
  Serious: Yes (Hospitalization)
  Sender: FDA-Public Use
  Company Number: FR-GENENTECH-324506

PATIENT
  Sex: Female

DRUGS (1)
  1. MABTHERA [Suspect]
     Indication: IDIOPATHIC THROMBOCYTOPENIC PURPURA
     Dosage: 375 MG/M2, UNK
     Route: 042
     Dates: start: 20110705, end: 20110725

REACTIONS (6)
  - PROTEINURIA [None]
  - HYPERTENSION [None]
  - RENAL FAILURE ACUTE [None]
  - NEPHRITIC SYNDROME [None]
  - OEDEMA [None]
  - HAEMATURIA [None]
